FAERS Safety Report 9022399 (Version 1)
Quarter: 2013Q1

REPORT INFORMATION
  Report Type: Report from Study
  Country: US (occurrence: US)
  Receive Date: 20130118
  Receipt Date: 20130118
  Transmission Date: 20140127
  Serious: Yes (Other)
  Sender: FDA-Public Use
  Company Number: US-BRISTOL-MYERS SQUIBB COMPANY-17274333

PATIENT
  Age: 58 Year
  Sex: Female

DRUGS (8)
  1. SPRYCEL [Suspect]
     Dosage: INTER-AUG12.RESTARTED-DEC12 WITH DOSE-50MG?INTER-DEC12 FOR 2WEEKS?AGAIN STARTED WITH 70MG
  2. ULTRAM [Concomitant]
  3. EXCEDRIN [Concomitant]
     Indication: MIGRAINE
  4. REGLAN [Concomitant]
  5. ZOFRAN [Concomitant]
  6. SPIRONOLACTONE [Concomitant]
  7. OXYCONTIN [Concomitant]
  8. PROCHLORPERAZINE [Concomitant]

REACTIONS (4)
  - Gallbladder disorder [Unknown]
  - Headache [Unknown]
  - Bone pain [Unknown]
  - Drug dose omission [Unknown]
